FAERS Safety Report 4758479-1 (Version None)
Quarter: 2005Q3

REPORT INFORMATION
  Report Type: 
  Country: None (occurrence: None)
  Receive Date: 20050830
  Receipt Date: 20050830
  Transmission Date: 20060218
  Serious: Yes (Disabling)
  Sender: FDA-Public Use
  Company Number: None

PATIENT
  Age: 63 Year
  Sex: Male
  Weight: 83.9154 kg

DRUGS (8)
  1. MIRTAZAPINE [Suspect]
     Indication: DEPRESSION
     Dosage: 15MG ONCE DAILY AT NITE
     Dates: start: 20050727, end: 20050802
  2. ZESTRIL [Concomitant]
  3. LOVASTATIN [Concomitant]
  4. HYDROXYZINE [Concomitant]
  5. HYTRIN [Concomitant]
  6. PROPXYPHENE [Concomitant]
  7. OMEPRAZOLE [Concomitant]
  8. TEMAZEPAM [Concomitant]

REACTIONS (4)
  - ANGIOPATHY [None]
  - ARTERIAL DISORDER [None]
  - BLOOD PRESSURE INCREASED [None]
  - HEADACHE [None]
